FAERS Safety Report 5072868-X (Version None)
Quarter: 2006Q3

REPORT INFORMATION
  Report Type: 
  Country: None (occurrence: None)
  Receive Date: 20060802
  Receipt Date: 20060410
  Transmission Date: 20061208
  Serious: Yes (Hospitalization)
  Sender: FDA-Public Use
  Company Number: OMPQ-NO-0604S-0249

PATIENT
  Age: 42 Year
  Sex: Female

DRUGS (1)
  1. OMNIPAQUE 140 [Suspect]
     Indication: DRUG USE FOR UNKNOWN INDICATION
     Dosage: SINGLE DOSE I.A.
     Dates: start: 20060225, end: 20060225

REACTIONS (4)
  - CAROTID ARTERY THROMBOSIS [None]
  - ILIAC ARTERY THROMBOSIS [None]
  - INJECTION SITE THROMBOSIS [None]
  - POST PROCEDURAL COMPLICATION [None]
